FAERS Safety Report 8520249-6 (Version None)
Quarter: 2012Q3

REPORT INFORMATION
  Report Type: 
  Country: None (occurrence: None)
  Receive Date: 20120712
  Receipt Date: 20120712
  Transmission Date: 20120928
  Serious: Yes (Other)
  Sender: FDA-Public Use
  Company Number: None

PATIENT
  Sex: Male

DRUGS (1)
  1. ACTHAR [Suspect]
     Dosage: 40U TWICE WEEKLY
     Route: 058
     Dates: start: 20120628, end: 20120705

REACTIONS (7)
  - JOINT SWELLING [None]
  - PRURITUS GENERALISED [None]
  - OEDEMA PERIPHERAL [None]
  - FEELING COLD [None]
  - NAUSEA [None]
  - VOMITING [None]
  - DIZZINESS [None]
